FAERS Safety Report 8241868-0 (Version None)
Quarter: 2012Q1

REPORT INFORMATION
  Report Type: 
  Country: None (occurrence: None)
  Receive Date: 20120328
  Receipt Date: 20120314
  Transmission Date: 20120608
  Serious: Yes (Hospitalization, Other)
  Sender: FDA-Public Use
  Company Number: US-MYLANLABS-2012S1006324

PATIENT
  Sex: Male
  Weight: 26.81 kg

DRUGS (19)
  1. LASIX [Concomitant]
     Route: 042
  2. COMPAZINE [Concomitant]
     Dosage: PRN
  3. CARBOPLATIN [Concomitant]
  4. XANAX [Concomitant]
  5. AMIODARONE HCL [Concomitant]
  6. CELEXA [Concomitant]
  7. IMODIUM [Concomitant]
     Route: 048
  8. PERCOCET [Concomitant]
  9. ANZEMET [Concomitant]
  10. DECADRON [Concomitant]
  11. MARINOL /00003301/ [Concomitant]
  12. KEFLEX [Concomitant]
  13. METAMUCIL-2 [Concomitant]
     Dosage: 1-2 TABLESPOONS
     Route: 048
  14. POTASSIUM [Concomitant]
  15. VICODIN [Concomitant]
     Dosage: 5/500MG
  16. NITROGLYCERIN [Concomitant]
     Dosage: 1 INCH
     Route: 061
  17. CARDIZEM [Concomitant]
  18. OXYCONTIN [Concomitant]
  19. DIGOXIN [Suspect]
     Route: 048
     Dates: start: 20080201, end: 20080331

REACTIONS (42)
  - ASPIRATION PLEURAL CAVITY [None]
  - EJECTION FRACTION DECREASED [None]
  - PNEUMONIA [None]
  - WEIGHT DECREASED [None]
  - MALIGNANT PLEURAL EFFUSION [None]
  - SMALL CELL LUNG CANCER STAGE UNSPECIFIED [None]
  - BUNDLE BRANCH BLOCK RIGHT [None]
  - DECREASED ACTIVITY [None]
  - SUPRAVENTRICULAR TACHYARRHYTHMIA [None]
  - PERICARDIAL EFFUSION [None]
  - ANXIETY DISORDER [None]
  - AORTIC VALVE SCLEROSIS [None]
  - DEPRESSION [None]
  - ELECTROCARDIOGRAM ABNORMAL [None]
  - LEFT VENTRICULAR HYPERTROPHY [None]
  - OXYGEN SATURATION DECREASED [None]
  - CHEST PAIN [None]
  - BACK PAIN [None]
  - CONSTIPATION [None]
  - EMPHYSEMA [None]
  - RHONCHI [None]
  - ABDOMINAL DISTENSION [None]
  - DECREASED APPETITE [None]
  - HEART RATE INCREASED [None]
  - MUSCULOSKELETAL CHEST PAIN [None]
  - PULMONARY MASS [None]
  - RIB FRACTURE [None]
  - ASTHENIA [None]
  - DIARRHOEA [None]
  - DYSPNOEA [None]
  - PULMONARY VALVE INCOMPETENCE [None]
  - PNEUMOTHORAX [None]
  - BREATH SOUNDS ABNORMAL [None]
  - HYPOKALAEMIA [None]
  - RESPIRATORY DISTRESS [None]
  - TUMOUR PAIN [None]
  - LUNG NEOPLASM MALIGNANT [None]
  - METASTATIC NEOPLASM [None]
  - ATELECTASIS [None]
  - NEUROENDOCRINE TUMOUR [None]
  - PNEUMONITIS [None]
  - PRODUCTIVE COUGH [None]
